FAERS Safety Report 24074864 (Version 1)
Quarter: 2024Q3

REPORT INFORMATION
  Report Type: Spontaneous
  Country: US (occurrence: US)
  Receive Date: 20240710
  Receipt Date: 20240710
  Transmission Date: 20241017
  Serious: Yes (Other)
  Sender: PIERRE FABRE MEDICAMENT
  Company Number: US-PFM-2023-06342

PATIENT
  Age: 0 Year
  Sex: Female
  Weight: 6.95 kg

DRUGS (2)
  1. HEMANGEOL [Suspect]
     Active Substance: PROPRANOLOL HYDROCHLORIDE
     Indication: Haemangioma
     Dosage: 1.7 ML, BID (2/DAY)
     Route: 048
     Dates: start: 20231005
  2. HEMANGEOL [Suspect]
     Active Substance: PROPRANOLOL HYDROCHLORIDE
     Dosage: 2.6 ML
     Route: 065

REACTIONS (3)
  - Lower respiratory tract infection [Unknown]
  - Respiratory syncytial virus infection [Unknown]
  - Illness [Unknown]

NARRATIVE: CASE EVENT DATE: 20231001
